FAERS Safety Report 5639700-4 (Version None)
Quarter: 2008Q1

REPORT INFORMATION
  Report Type: 
  Country: None (occurrence: None)
  Receive Date: 20080131
  Receipt Date: 20071121
  Transmission Date: 20080703
  Serious: Yes (Hospitalization, Other)
  Sender: FDA-Public Use
  Company Number: 163-21880-07110046

PATIENT
  Age: 53 Year
  Sex: Male
  Weight: 108.4097 kg

DRUGS (15)
  1. REVLIMID [Suspect]
     Indication: MULTIPLE MYELOMA
     Dosage: 15 MG, ON DAYS 1 THROUGH 14 EVERY 3 WEEKS, ORAL ; ON DAYS 1 THROUGH 14 EVERY 3 WKS, ORAL
     Route: 048
     Dates: start: 20070904, end: 20071030
  2. REVLIMID [Suspect]
     Indication: MULTIPLE MYELOMA
     Dosage: 15 MG, ON DAYS 1 THROUGH 14 EVERY 3 WEEKS, ORAL ; ON DAYS 1 THROUGH 14 EVERY 3 WKS, ORAL
     Route: 048
     Dates: start: 20071116
  3. DEXAMETHASONE [Suspect]
     Indication: MULTIPLE MYELOMA
     Dosage: 20 MG, DAY OF AND DAY AFTER VELCADE
     Dates: start: 20070904
  4. VELCADE [Suspect]
     Indication: MULTIPLE MYELOMA
     Dosage: 1 MG/M2, DAYS 1,4,8,11 Q3W, INTRAVENOUS
     Route: 042
     Dates: start: 20070904
  5. PROCRIT [Concomitant]
  6. LEVOXYL [Concomitant]
  7. ASPIRIN [Concomitant]
  8. VYTORIN (INEGY) (TABLETS) [Concomitant]
  9. PAMIDRONATE (PAMIDRONATE SODIUM) [Concomitant]
  10. LYRICA (PREGABALIN) (50 MILLIGRAM) [Concomitant]
  11. NEXIUM [Concomitant]
  12. ACYCLOVIR [Concomitant]
  13. MULTIVITAMIN (MULTIVITAMIN ^LAPPE^) [Concomitant]
  14. ZANTAC [Concomitant]
  15. HEPARIN [Concomitant]

REACTIONS (3)
  - ELECTROCARDIOGRAM QT PROLONGED [None]
  - FATIGUE [None]
  - PNEUMONIA [None]
